FAERS Safety Report 6450548-3 (Version None)
Quarter: 2009Q4

REPORT INFORMATION
  Report Type: 
  Country: None (occurrence: None)
  Receive Date: 20091123
  Receipt Date: 20091118
  Transmission Date: 20100525
  Serious: Yes (Death)
  Sender: FDA-Public Use
  Company Number: PHEH2009US15857

PATIENT
  Sex: Female

DRUGS (6)
  1. EXJADE [Suspect]
     Indication: ACUTE MYELOID LEUKAEMIA
     Dosage: 125 MG DAILY
     Route: 048
     Dates: start: 20081109, end: 20090801
  2. EXJADE [Suspect]
     Indication: IRON OVERLOAD
  3. FUROSEMIDE [Concomitant]
  4. INSULIN [Concomitant]
  5. EVISTA [Concomitant]
  6. DECITABINE [Concomitant]

REACTIONS (2)
  - MALIGNANT NEOPLASM PROGRESSION [None]
  - PNEUMONIA [None]
